FAERS Safety Report 9440577 (Version 1)
Quarter: 2013Q3

REPORT INFORMATION
  Report Type: Spontaneous
  Country: RU (occurrence: RU)
  Receive Date: 20130805
  Receipt Date: 20130805
  Transmission Date: 20140515
  Serious: Yes (Other)
  Sender: FDA-Public Use
  Company Number: RU-JNJFOC-20130801277

PATIENT
  Age: 13 Year
  Sex: Male

DRUGS (5)
  1. REMICADE [Suspect]
     Indication: PRODUCT USED FOR UNKNOWN INDICATION
     Route: 042
  2. PREDNISOLONE [Concomitant]
     Route: 065
  3. ASPARCAM [Concomitant]
     Route: 065
  4. COLECALCIFEROL [Concomitant]
     Route: 065
  5. CALCIUM CARBONATE [Concomitant]
     Route: 065

REACTIONS (5)
  - Erythema [Recovered/Resolved]
  - Oedema mouth [Recovered/Resolved]
  - Rash pruritic [Recovered/Resolved]
  - Vomiting [Recovered/Resolved]
  - Dyspnoea [Recovered/Resolved]
